FAERS Safety Report 15484571 (Version 4)
Quarter: 2019Q2

REPORT INFORMATION
  Report Type: Report from Study
  Country: US (occurrence: US)
  Receive Date: 20181010
  Receipt Date: 20190530
  Transmission Date: 20190711
  Serious: Yes (Other)
  Sender: FDA-Public Use
  Company Number: PHEH2018US042449

PATIENT
  Sex: Male

DRUGS (1)
  1. GLEEVEC [Suspect]
     Active Substance: IMATINIB MESYLATE
     Indication: PRODUCT USED FOR UNKNOWN INDICATION
     Route: 065

REACTIONS (10)
  - Hypoacusis [Unknown]
  - Helplessness [Unknown]
  - Decreased appetite [Unknown]
  - Eating disorder [Unknown]
  - Prostate cancer [Unknown]
  - Osteoporosis [Unknown]
  - General physical health deterioration [Unknown]
  - Weight decreased [Unknown]
  - Cerebral disorder [Unknown]
  - Panic reaction [Unknown]
